FAERS Safety Report 6391136-7 (Version None)
Quarter: 2009Q4

REPORT INFORMATION
  Report Type: 
  Country: None (occurrence: None)
  Receive Date: 20091006
  Receipt Date: 20091006
  Transmission Date: 20100525
  Serious: Yes (Other)
  Sender: FDA-Public Use
  Company Number: None

PATIENT
  Sex: Female
  Weight: 70.3075 kg

DRUGS (2)
  1. LYBREL [Suspect]
     Indication: MENSTRUATION IRREGULAR
     Dosage: 1 PILL 1 PER DAY PO
     Route: 048
     Dates: start: 20071201, end: 20090925
  2. LYBREL [Suspect]
     Indication: MIGRAINE
     Dosage: 1 PILL 1 PER DAY PO
     Route: 048
     Dates: start: 20071201, end: 20090925

REACTIONS (2)
  - ALOPECIA [None]
  - HAEMORRHAGE [None]
